FAERS Safety Report 5995006-5 (Version None)
Quarter: 2008Q4

REPORT INFORMATION
  Report Type: 
  Country: None (occurrence: None)
  Receive Date: 20081212
  Receipt Date: 20080921
  Transmission Date: 20090506
  Serious: No
  Sender: FDA-Public Use
  Company Number: US-ABBOTT-08P-163-0477432-00

PATIENT
  Sex: Female
  Weight: 103.06 kg

DRUGS (4)
  1. HUMIRA [Suspect]
     Indication: PSORIASIS
  2. HUMIRA [Suspect]
     Dates: start: 20080728
  3. METFORMIN HCL [Concomitant]
     Indication: DIABETES MELLITUS
     Route: 048
  4. BUDESONIDE W/FORMOTEROL FUMARATE [Concomitant]
     Indication: ASTHMA
     Route: 055

REACTIONS (6)
  - PRURITUS [None]
  - PSORIASIS [None]
  - SKIN EXFOLIATION [None]
  - SKIN FISSURES [None]
  - TYPE 2 DIABETES MELLITUS [None]
  - WOUND DRAINAGE [None]
